FAERS Safety Report 26207691 (Version 1)
Quarter: 2025Q4

REPORT INFORMATION
  Report Type: Spontaneous
  Country: EU (occurrence: EU)
  Receive Date: 20251229
  Receipt Date: 20251229
  Transmission Date: 20260118
  Serious: Yes (Other)
  Sender: TEVA
  Company Number: None

PATIENT
  Age: 2 Year
  Sex: Male
  Weight: 13 kg

DRUGS (1)
  1. MELOXICAM [Suspect]
     Active Substance: MELOXICAM
     Indication: Bronchial obstruction
     Route: 048
     Dates: start: 20241201, end: 20241228

REACTIONS (5)
  - Urinary incontinence [Not Recovered/Not Resolved]
  - Abnormal behaviour [Recovering/Resolving]
  - Pollakiuria [Not Recovered/Not Resolved]
  - Irritability [Recovering/Resolving]
  - Aggression [Recovering/Resolving]

NARRATIVE: CASE EVENT DATE: 20241201
